FAERS Safety Report 5035526-3 (Version None)
Quarter: 2006Q2

REPORT INFORMATION
  Report Type: 
  Country: None (occurrence: None)
  Receive Date: 20060526
  Receipt Date: 20060221
  Transmission Date: 20061013
  Serious: No
  Sender: FDA-Public Use
  Company Number: 222321

PATIENT
  Age: 36 Year
  Sex: Male

DRUGS (3)
  1. RAPTIVA [Suspect]
     Indication: PSORIASIS
     Dosage: 125 MG, SUBCUTANEOUS
     Route: 058
     Dates: start: 20060219
  2. ZOLOFT [Concomitant]
  3. CARBIDOPA/LEVODOPA (CARBIDOPA, LEVODOPA) [Concomitant]

REACTIONS (2)
  - INCORRECT DOSE ADMINISTERED [None]
  - OCULAR HYPERAEMIA [None]
